FAERS Safety Report 6442029-8 (Version None)
Quarter: 2009Q4

REPORT INFORMATION
  Report Type: 
  Country: None (occurrence: None)
  Receive Date: 20091112
  Receipt Date: 20091102
  Transmission Date: 20100525
  Serious: Yes (Hospitalization, Disabling)
  Sender: FDA-Public Use
  Company Number: ADR47082009

PATIENT
  Age: 75 Year
  Sex: Female

DRUGS (5)
  1. SIMVASTATIN [Suspect]
     Indication: BLOOD CHOLESTEROL INCREASED
     Dosage: 40MG ORAL
     Route: 048
     Dates: start: 20070401, end: 20070430
  2. AMLODIPINE [Concomitant]
  3. BISOPROLOL [Concomitant]
  4. CALCIUM ACETATE [Concomitant]
  5. CLOPIDOGREL [Concomitant]

REACTIONS (4)
  - BLOOD CREATINE PHOSPHOKINASE INCREASED [None]
  - MOBILITY DECREASED [None]
  - MYOSITIS [None]
  - SENSATION OF HEAVINESS [None]
